FAERS Safety Report 4971666-2 (Version None)
Quarter: 2006Q2

REPORT INFORMATION
  Report Type: 
  Country: None (occurrence: None)
  Receive Date: 20060413
  Receipt Date: 20060403
  Transmission Date: 20061013
  Serious: Yes (Other)
  Sender: FDA-Public Use
  Company Number: SE-BRISTOL-MYERS SQUIBB COMPANY-13337225

PATIENT
  Age: 59 Year
  Sex: Male
  Weight: 84 kg

DRUGS (3)
  1. PRAVACHOL [Suspect]
     Dates: start: 20020101, end: 20060329
  2. STESOLID [Concomitant]
  3. PIKASOL [Concomitant]

REACTIONS (8)
  - BACK PAIN [None]
  - EYE DISORDER [None]
  - GLAUCOMA [None]
  - MYALGIA [None]
  - NAUSEA [None]
  - VISION BLURRED [None]
  - VITREOUS DETACHMENT [None]
  - VITREOUS FLOATERS [None]
